FAERS Safety Report 11279072 (Version 1)
Quarter: 2015Q3

REPORT INFORMATION
  Report Type: Spontaneous
  Country: US (occurrence: US)
  Receive Date: 20150717
  Receipt Date: 20150717
  Transmission Date: 20151125
  Serious: Yes (Hospitalization)
  Sender: FDA-Public Use
  Company Number: US-BEH-2015052371

PATIENT
  Sex: Female
  Weight: 76 kg

DRUGS (28)
  1. CETIRIZINE [Concomitant]
     Active Substance: CETIRIZINE HYDROCHLORIDE
  2. DIPHENHYDRAMINE. [Concomitant]
     Active Substance: DIPHENHYDRAMINE
     Indication: ANAPHYLACTIC REACTION
  3. FOSAMAX [Concomitant]
     Active Substance: ALENDRONATE SODIUM
  4. SPIRONOLACTONE. [Concomitant]
     Active Substance: SPIRONOLACTONE
  5. NEXIUM [Concomitant]
     Active Substance: ESOMEPRAZOLE MAGNESIUM
  6. HIZENTRA [Suspect]
     Active Substance: HUMAN IMMUNOGLOBULIN G
     Indication: IMMUNODEFICIENCY COMMON VARIABLE
     Dosage: 1 GM 5 ML VIAL
     Route: 058
  7. ERYTHROMYCIN. [Concomitant]
     Active Substance: ERYTHROMYCIN
  8. LMX [Concomitant]
     Active Substance: LIDOCAINE
  9. SENNA [Concomitant]
     Active Substance: SENNA LEAF\SENNOSIDES\SENNOSIDES A AND B
  10. TOBRAMYCIN. [Concomitant]
     Active Substance: TOBRAMYCIN
  11. LEXAPRO [Concomitant]
     Active Substance: ESCITALOPRAM OXALATE
  12. ABILIFY [Concomitant]
     Active Substance: ARIPIPRAZOLE
  13. HIZENTRA [Suspect]
     Active Substance: HUMAN IMMUNOGLOBULIN G
     Indication: HYPOGAMMAGLOBULINAEMIA
     Dosage: 4 GM 20 ML VIAL
     Route: 058
  14. GABAPENTIN. [Concomitant]
     Active Substance: GABAPENTIN
  15. MEDROL [Concomitant]
     Active Substance: METHYLPREDNISOLONE
  16. CLINDAMYCIN [Concomitant]
     Active Substance: CLINDAMYCIN\CLINDAMYCIN PHOSPHATE
  17. CALCIUM [Concomitant]
     Active Substance: CALCIUM
  18. VESICARE [Concomitant]
     Active Substance: SOLIFENACIN SUCCINATE
  19. FERROUS SULFATE [Concomitant]
     Active Substance: FERROUS SULFATE\FERROUS SULFATE, DRIED
  20. ESTRADIOL. [Concomitant]
     Active Substance: ESTRADIOL
  21. EPIPEN [Concomitant]
     Active Substance: EPINEPHRINE
     Indication: ANAPHYLACTIC REACTION
  22. CIPRO [Concomitant]
     Active Substance: CIPROFLOXACIN HYDROCHLORIDE
  23. OXYCODONE [Concomitant]
     Active Substance: OXYCODONE
  24. DOXYCYCLINE. [Concomitant]
     Active Substance: DOXYCYCLINE
  25. ROBITUSSIN (GUAIFENESIN) [Concomitant]
     Active Substance: GUAIFENESIN
  26. DUONEB [Concomitant]
     Active Substance: ALBUTEROL SULFATE\IPRATROPIUM BROMIDE
  27. CYMBALTA [Concomitant]
     Active Substance: DULOXETINE HYDROCHLORIDE
  28. METHOTREXATE [Concomitant]
     Active Substance: METHOTREXATE

REACTIONS (6)
  - Urinary tract infection [Unknown]
  - Fall [Unknown]
  - Loss of consciousness [Unknown]
  - Blood iron decreased [Unknown]
  - Respiratory tract congestion [Unknown]
  - Wrist fracture [Unknown]
